FAERS Safety Report 5204487-6 (Version None)
Quarter: 2006Q4

REPORT INFORMATION
  Report Type: 
  Country: None (occurrence: None)
  Receive Date: 20061026
  Receipt Date: 20060927
  Transmission Date: 20070319
  Serious: Yes (Other)
  Sender: FDA-Public Use
  Company Number: 2006117858

PATIENT
  Age: 59 Year
  Sex: Female
  Weight: 56.6996 kg

DRUGS (5)
  1. LYRICA [Suspect]
     Indication: COMPLEX REGIONAL PAIN SYNDROME
     Dosage: 50 MG (50 MG 1 IN 1 D)
  2. LYRICA [Suspect]
     Indication: NEUROPATHY
     Dosage: 50 MG (50 MG 1 IN 1 D)
  3. LEXAPRO [Suspect]
     Indication: COMPLEX REGIONAL PAIN SYNDROME
     Dosage: 5 MG (5 MG, 1 IN 1 D)
  4. VICODIN [Concomitant]
  5. THYROID TAB [Concomitant]

REACTIONS (10)
  - COMPLEX REGIONAL PAIN SYNDROME [None]
  - DRUG INEFFECTIVE [None]
  - DRY EYE [None]
  - EYE PAIN [None]
  - FATIGUE [None]
  - HAND FRACTURE [None]
  - HEADACHE [None]
  - MUSCLE SPASMS [None]
  - MYALGIA [None]
  - VISION BLURRED [None]
